FAERS Safety Report 15345107 (Version 1)
Quarter: 2018Q3

REPORT INFORMATION
  Report Type: Spontaneous
  Country: FR (occurrence: FR)
  Receive Date: 20180903
  Receipt Date: 20180903
  Transmission Date: 20181010
  Serious: Yes (Hospitalization)
  Sender: FDA-Public Use
  Company Number: PHHY2018FR084365

PATIENT
  Age: 57 Year
  Sex: Female

DRUGS (2)
  1. PROGESTERONE. [Suspect]
     Active Substance: PROGESTERONE
     Indication: TOXICITY TO VARIOUS AGENTS
     Dosage: 17 DF, TOTAL
     Route: 048
     Dates: start: 20170630
  2. STILNOX [Suspect]
     Active Substance: ZOLPIDEM TARTRATE
     Indication: TOXICITY TO VARIOUS AGENTS
     Dosage: 11 DF, TOTAL
     Route: 048
     Dates: start: 20170630

REACTIONS (2)
  - Somnolence [Recovered/Resolved]
  - Intentional overdose [Recovered/Resolved]

NARRATIVE: CASE EVENT DATE: 20170630
